FAERS Safety Report 7508946-2 (Version None)
Quarter: 2011Q2

REPORT INFORMATION
  Report Type: 
  Country: None (occurrence: None)
  Receive Date: 20110519
  Receipt Date: 20110513
  Transmission Date: 20111010
  Serious: Yes (Life-Threatening, Hospitalization, Other)
  Sender: FDA-Public Use
  Company Number: WAES 1009FRA00073

PATIENT
  Age: 55 Year
  Sex: Female

DRUGS (23)
  1. LAMIVUDINE [Suspect]
     Indication: HIV INFECTION
     Dosage: 300 MG/DAILY/PO
     Route: 048
     Dates: start: 20100803, end: 20100920
  2. ATORVASTATIN CALCIUM [Concomitant]
  3. MYCOPHENOLATE MEFETIL [Concomitant]
  4. VALACYCLOVIR HYDROCHLORIDE [Concomitant]
  5. ISONIAZID [Suspect]
     Indication: TUBERCULOSIS
     Dosage: 250 MG/DAILY/PO
     Route: 048
     Dates: start: 20100628, end: 20100920
  6. AMOXICILLIN AND CLAVULANATE POTASSIUM [Suspect]
     Indication: PYREXIA
     Dosage: 2 TAB/DAILY/PO
     Route: 048
     Dates: start: 20100907, end: 20100911
  7. EMTRICITABINE (+) TENOFOVIR DISOPROXIL F [Concomitant]
  8. ASPIRIN [Concomitant]
  9. ENOXAPARIN SODIUM [Concomitant]
  10. ETHAMBUTOL HYDROCHLORIDE [Concomitant]
  11. TACROLIMUS [Concomitant]
  12. ESOMEPRAZOLE MAGNESIUM [Concomitant]
  13. MOXIFLOXACIN HYDROCHLORIDE [Concomitant]
  14. ISENTRESS [Suspect]
     Indication: HIV INFECTION
     Dosage: 800 MG/BID/PO, 400 MG/BID/PO
     Route: 048
     Dates: start: 20100803, end: 20100920
  15. ISENTRESS [Suspect]
     Indication: HIV INFECTION
     Dosage: 800 MG/BID/PO, 400 MG/BID/PO
     Route: 048
     Dates: start: 20101112
  16. CEFIXIME [Suspect]
     Indication: PYREXIA
     Dosage: 400 MG/DAILY/PO
     Route: 048
     Dates: start: 20100911, end: 20100915
  17. AMLODIPINE [Concomitant]
  18. LANSOPRAZOLE [Concomitant]
  19. PREDNISONE [Concomitant]
  20. TRAMADOL HCL [Concomitant]
  21. TENOFOVIR DISOPROXIL FUMARATE [Suspect]
     Indication: HIV INFECTION
     Dosage: 245 MG/DAILY/PO
     Route: 048
     Dates: start: 20100803, end: 20100920
  22. RIFAMPIN [Suspect]
     Indication: TUBERCULOSIS
     Dosage: 600 MG/DAILY/PO
     Route: 048
     Dates: start: 20100628, end: 20100920
  23. CHONDROITIN SULFATE SODIUM [Concomitant]

REACTIONS (14)
  - HEPATIC NECROSIS [None]
  - HEPATIC ARTERY THROMBOSIS [None]
  - PERITONEAL HAEMORRHAGE [None]
  - ANASTOMOTIC HAEMORRHAGE [None]
  - HEPATITIS FULMINANT [None]
  - COMPLICATIONS OF TRANSPLANTED LIVER [None]
  - CYTOLYTIC HEPATITIS [None]
  - LIVER TRANSPLANT [None]
  - PERITONITIS BACTERIAL [None]
  - BLOOD BICARBONATE DECREASED [None]
  - ENTEROCOCCUS TEST POSITIVE [None]
  - STAPHYLOCOCCUS TEST POSITIVE [None]
  - HEPATIC ENCEPHALOPATHY [None]
  - HAEMOGLOBIN DECREASED [None]
